FAERS Safety Report 17202585 (Version 1)
Quarter: 2019Q4

REPORT INFORMATION
  Report Type: Spontaneous
  Country: CN (occurrence: CN)
  Receive Date: 20191226
  Receipt Date: 20191226
  Transmission Date: 20200122
  Serious: Yes (Hospitalization)
  Sender: FDA-Public Use
  Company Number: CN-SA-2019SA354744

PATIENT
  Age: 55 Year
  Sex: Male
  Weight: 74 kg

DRUGS (6)
  1. TAXOTERE [Suspect]
     Active Substance: DOCETAXEL
     Indication: CHEMOTHERAPY
     Dosage: 140 MG, QD
     Route: 041
     Dates: start: 20191119, end: 20191119
  2. SODIUM CHLORIDE. [Concomitant]
     Active Substance: SODIUM CHLORIDE
     Indication: VEHICLE SOLUTION USE
     Dosage: 500 ML, QD
     Route: 041
     Dates: start: 20191119, end: 20191119
  3. CISPLATIN. [Suspect]
     Active Substance: CISPLATIN
     Indication: CHEMOTHERAPY
     Dosage: 140 MG, QD
     Route: 041
     Dates: start: 20191119, end: 20191119
  4. SODIUM CHLORIDE. [Concomitant]
     Active Substance: SODIUM CHLORIDE
     Indication: VEHICLE SOLUTION USE
     Dosage: 1000 ML, QD
     Route: 041
     Dates: start: 20191119, end: 20191123
  5. SODIUM CHLORIDE. [Concomitant]
     Active Substance: SODIUM CHLORIDE
     Indication: VEHICLE SOLUTION USE
     Dosage: 250 ML, QD
     Route: 041
     Dates: start: 20191119, end: 20191119
  6. FLUOROURACIL. [Suspect]
     Active Substance: FLUOROURACIL
     Indication: CHEMOTHERAPY
     Dosage: 1400 MG, QD
     Route: 041
     Dates: start: 20191119, end: 20191123

REACTIONS (10)
  - Diarrhoea [Recovering/Resolving]
  - White blood cell count decreased [Recovering/Resolving]
  - Nausea [Recovering/Resolving]
  - Vomiting [Recovering/Resolving]
  - Platelet count decreased [Recovering/Resolving]
  - Asthenia [Recovering/Resolving]
  - Haemoglobin decreased [Recovering/Resolving]
  - Neutrophil count decreased [Recovering/Resolving]
  - Pyrexia [Recovering/Resolving]
  - Fatigue [Recovering/Resolving]

NARRATIVE: CASE EVENT DATE: 20191125
